FAERS Safety Report 4294161-5 (Version None)
Quarter: 2004Q1

REPORT INFORMATION
  Report Type: 
  Country: None (occurrence: None)
  Receive Date: 20040211
  Receipt Date: 20030425
  Transmission Date: 20041129
  Serious: Yes (Other)
  Sender: FDA-Public Use
  Company Number: US_0402100401

PATIENT
  Age: 20 Year
  Sex: Male

DRUGS (1)
  1. SOMATROPIN [Suspect]

REACTIONS (2)
  - SARCOMA [None]
  - TONGUE DISORDER [None]
